FAERS Safety Report 6145101-5 (Version None)
Quarter: 2009Q2

REPORT INFORMATION
  Report Type: 
  Country: None (occurrence: None)
  Receive Date: 20090406
  Receipt Date: 20090305
  Transmission Date: 20091009
  Serious: No
  Sender: FDA-Public Use
  Company Number: A0771562A

PATIENT
  Age: 35 Year
  Sex: Female

DRUGS (1)
  1. ADVAIR HFA [Suspect]
     Indication: DRUG USE FOR UNKNOWN INDICATION
     Route: 055

REACTIONS (4)
  - CARPAL TUNNEL SYNDROME [None]
  - INSOMNIA [None]
  - MENOPAUSAL SYMPTOMS [None]
  - PREMATURE MENOPAUSE [None]
